FAERS Safety Report 24979144 (Version 4)
Quarter: 2025Q3

REPORT INFORMATION
  Report Type: Report from Study
  Country: US (occurrence: US)
  Receive Date: 20250218
  Receipt Date: 20250714
  Transmission Date: 20251020
  Serious: Yes (Hospitalization)
  Sender: ABBVIE
  Company Number: US-ABBVIE-6135950

PATIENT
  Age: 40 Year
  Sex: Male
  Weight: 90.718 kg

DRUGS (7)
  1. VENCLEXTA [Suspect]
     Active Substance: VENETOCLAX
     Indication: Chronic lymphocytic leukaemia
     Route: 048
     Dates: start: 20250116, end: 20250122
  2. VENCLEXTA [Suspect]
     Active Substance: VENETOCLAX
     Indication: Chronic lymphocytic leukaemia
     Route: 048
     Dates: start: 20250109, end: 20250115
  3. VENCLEXTA [Suspect]
     Active Substance: VENETOCLAX
     Indication: Chronic lymphocytic leukaemia
     Dosage: END DATE : 2025
     Route: 048
     Dates: start: 20250130
  4. VENCLEXTA [Suspect]
     Active Substance: VENETOCLAX
     Indication: Chronic lymphocytic leukaemia
     Route: 048
     Dates: start: 20250123, end: 20250129
  5. VENCLEXTA [Suspect]
     Active Substance: VENETOCLAX
     Indication: Chronic lymphocytic leukaemia
     Route: 048
     Dates: start: 20250102, end: 20250108
  6. VENCLEXTA [Suspect]
     Active Substance: VENETOCLAX
     Indication: Chronic lymphocytic leukaemia
     Route: 048
     Dates: start: 202411
  7. GAZYVA [Suspect]
     Active Substance: OBINUTUZUMAB
     Indication: Adjuvant therapy
     Dosage: UNKNOWN
     Route: 042
     Dates: start: 20241204

REACTIONS (12)
  - Heart rate increased [Recovered/Resolved]
  - Cough [Recovered/Resolved]
  - Supraventricular tachycardia [Unknown]
  - Nasopharyngitis [Recovered/Resolved]
  - Pneumonia [Unknown]
  - Magnesium deficiency [Not Recovered/Not Resolved]
  - Oropharyngeal pain [Recovered/Resolved]
  - Oropharyngeal pain [Recovered/Resolved]
  - Nasopharyngitis [Recovered/Resolved]
  - Pyrexia [Recovered/Resolved]
  - Hypokalaemia [Not Recovered/Not Resolved]
  - Temperature intolerance [Unknown]

NARRATIVE: CASE EVENT DATE: 20250101
